FAERS Safety Report 13337449 (Version 2)
Quarter: 2017Q4

REPORT INFORMATION
  Report Type: Report from Study
  Country: FR (occurrence: FR)
  Receive Date: 20170315
  Receipt Date: 20171117
  Transmission Date: 20180320
  Serious: Yes (Hospitalization, Other)
  Sender: FDA-Public Use
  Company Number: PHHY2015FR110536

PATIENT
  Age: 53 Year
  Sex: Female

DRUGS (4)
  1. AFINITOR [Suspect]
     Active Substance: EVEROLIMUS
     Dosage: 5 MG, QD
     Route: 048
     Dates: start: 20150709, end: 20150825
  2. AFINITOR [Suspect]
     Active Substance: EVEROLIMUS
     Dosage: 10 MG, QD
     Route: 048
     Dates: start: 20150826, end: 20150904
  3. AFINITOR [Suspect]
     Active Substance: EVEROLIMUS
     Indication: BREAST CANCER
     Dosage: 10 MG, QD
     Route: 048
     Dates: start: 20150610, end: 20150623
  4. EXEMESTANE. [Concomitant]
     Active Substance: EXEMESTANE
     Indication: BREAST CANCER
     Dosage: 25 MG, QD
     Route: 065
     Dates: start: 20150610, end: 20150904

REACTIONS (8)
  - Oral pain [Recovered/Resolved]
  - Dehydration [Recovered/Resolved]
  - Mucosal inflammation [Recovered/Resolved]
  - Oral disorder [Recovered/Resolved]
  - Asthenia [Recovered/Resolved]
  - Pain [Recovered/Resolved]
  - Weight decreased [Recovered/Resolved]
  - Malnutrition [Recovered/Resolved]

NARRATIVE: CASE EVENT DATE: 20150629
